FAERS Safety Report 7422629-9 (Version None)
Quarter: 2011Q2

REPORT INFORMATION
  Report Type: 
  Country: None (occurrence: None)
  Receive Date: 20110411
  Receipt Date: 20110328
  Transmission Date: 20111010
  Serious: Yes (Death)
  Sender: FDA-Public Use
  Company Number: 2009AP004380

PATIENT
  Age: 89 Year
  Sex: Female

DRUGS (15)
  1. RISPERIDONE [Suspect]
     Indication: PARKINSON'S DISEASE
     Route: 048
  2. LACTOSE (LACTOSE) [Concomitant]
  3. FORTISIP (FORTISIP) [Concomitant]
  4. SINEMET [Concomitant]
  5. DIGOXIN [Concomitant]
  6. AMOXICILLIN TRIHYDRATE [Concomitant]
  7. IRON (IRON) [Concomitant]
  8. BISOPROLOL FUMARATE [Concomitant]
  9. ACETYLSALICYLIC ACID (ACETYLSALICYLIC ACID) [Concomitant]
  10. CARBIMAZOLE (CARBIMAZOLE) [Concomitant]
  11. CARBIDOPA (CARBIDOPA) [Concomitant]
  12. FUROSEMIDE (FUROSEMIDE) [Concomitant]
  13. LEVODOPA (LEVODOPA) [Concomitant]
  14. SPARTEINE SULFATE (SPARTEINE SULFATE) [Concomitant]
  15. ROPINIROLE HYDROCHLORIDE [Suspect]
     Indication: PRODUCT USED FOR UNKNOWN INDICATION
     Dosage: 9 MG; TAB; PO; QD
     Route: 048

REACTIONS (2)
  - MEDICATION ERROR [None]
  - WRONG DRUG ADMINISTERED [None]
